FAERS Safety Report 6717221-5 (Version None)
Quarter: 2010Q2

REPORT INFORMATION
  Report Type: 
  Country: None (occurrence: None)
  Receive Date: 20100510
  Receipt Date: 20100504
  Transmission Date: 20101027
  Serious: Yes (Hospitalization, Other)
  Sender: FDA-Public Use
  Company Number: PHHY2009BR29472

PATIENT
  Sex: Female
  Weight: 65 kg

DRUGS (13)
  1. EXELON [Suspect]
     Indication: DEMENTIA ALZHEIMER'S TYPE
     Dosage: 1.5 MG, BID
     Route: 048
     Dates: start: 20060101, end: 20080101
  2. EXELON [Suspect]
     Dosage: 3 MG, BID
     Route: 048
     Dates: start: 20080101, end: 20091201
  3. EXELON [Suspect]
     Dosage: 3 MG, BID
     Route: 048
  4. CAPTOPRIL [Concomitant]
     Dosage: 25 MG, TID
  5. SUSTRATE [Concomitant]
     Dosage: 1 DF, TID
  6. FUROSEMIDE [Concomitant]
     Dosage: 40 MG, QD IN THE MORNING
  7. ASPIRIN [Concomitant]
     Dosage: 200 MG, QD AT LUNCH
  8. BROMAZEPAM [Concomitant]
     Dosage: 6 MG, QD AT NIGHT
  9. SERTRALINE HCL [Concomitant]
     Dosage: 50 MG PER DAY
  10. NORTRIPTYLINE HCL [Concomitant]
     Dosage: 10 MG PER DAY
  11. SIMVASTATIN [Concomitant]
     Dosage: 1 TABLET PER DAY
  12. LOSARTAN POTASSIUM [Concomitant]
     Dosage: 50 MG, BID
  13. NIFEDIPINE [Concomitant]
     Dosage: 2.5 MG, BID

REACTIONS (7)
  - ABASIA [None]
  - BALANCE DISORDER [None]
  - CARDIAC FAILURE [None]
  - CATHETERISATION CARDIAC [None]
  - CONFUSIONAL STATE [None]
  - DYSPNOEA [None]
  - VENOUS OCCLUSION [None]
